FAERS Safety Report 4774758-6 (Version None)
Quarter: 2005Q3

REPORT INFORMATION
  Report Type: 
  Country: None (occurrence: None)
  Receive Date: 20050919
  Receipt Date: 20050915
  Transmission Date: 20060218
  Serious: Yes (Hospitalization, Congenital Anomaly)
  Sender: FDA-Public Use
  Company Number: 2005-132457-NL

PATIENT
  Sex: Male

DRUGS (3)
  1. NUVARING [Suspect]
     Dosage: DF
     Route: 064
     Dates: end: 20050321
  2. ANTIBIOTIC [Concomitant]
  3. METHYLDOPA [Concomitant]

REACTIONS (2)
  - DRUG EXPOSURE DURING PREGNANCY [None]
  - FALLOT'S TETRALOGY [None]
